FAERS Safety Report 9426676 (Version 1)
Quarter: 2013Q3

REPORT INFORMATION
  Report Type: Spontaneous
  Country: US (occurrence: US)
  Receive Date: 20130730
  Receipt Date: 20130730
  Transmission Date: 20140515
  Serious: No
  Sender: FDA-Public Use
  Company Number: US-SANOFI-AVENTIS-2012SA053489

PATIENT
  Age: 42 Year
  Sex: Female

DRUGS (5)
  1. AMBIEN [Suspect]
     Route: 048
     Dates: start: 2011
  2. SINGULAIR [Concomitant]
     Dates: start: 2011
  3. NEURONTIN [Concomitant]
  4. CLONAPIN [Concomitant]
  5. HALDOL [Concomitant]

REACTIONS (1)
  - Asthma [Unknown]
